FAERS Safety Report 9100949 (Version 1)
Quarter: 2013Q1

REPORT INFORMATION
  Report Type: Spontaneous
  Country: US (occurrence: US)
  Receive Date: 20130214
  Receipt Date: 20130214
  Transmission Date: 20140127
  Serious: Yes (Other)
  Sender: FDA-Public Use
  Company Number: US-PFIZER INC-2013055512

PATIENT
  Sex: Male
  Weight: 67.57 kg

DRUGS (5)
  1. REVATIO [Suspect]
     Indication: EMPHYSEMA
     Dosage: 20 MG, 3X/DAY
  2. REVATIO [Suspect]
     Indication: PULMONARY FIBROSIS
  3. REVATIO [Suspect]
     Indication: CARDIAC DISORDER
  4. NEXIUM [Concomitant]
     Dosage: 40 MG, 2X/DAY
  5. LIPITOR [Concomitant]
     Dosage: UNK,1X/DAY

REACTIONS (1)
  - Pneumonia [Recovered/Resolved]
